FAERS Safety Report 4309012-X (Version None)
Quarter: 2004Q1

REPORT INFORMATION
  Report Type: 
  Country: None (occurrence: None)
  Receive Date: 20040302
  Receipt Date: 20040220
  Transmission Date: 20041129
  Serious: Yes (Death)
  Sender: FDA-Public Use
  Company Number: JP-BRISTOL-MYERS SQUIBB COMPANY-12513610

PATIENT
  Sex: Female

DRUGS (1)
  1. VEPESID [Suspect]
     Indication: CERVIX CARCINOMA
     Route: 048

REACTIONS (4)
  - CERVIX CARCINOMA [None]
  - CONDITION AGGRAVATED [None]
  - INTERSTITIAL LUNG DISEASE [None]
  - MALIGNANT NEOPLASM PROGRESSION [None]
